FAERS Safety Report 23826859 (Version 1)
Quarter: 2024Q2

REPORT INFORMATION
  Report Type: Spontaneous
  Country: US (occurrence: US)
  Receive Date: 20240507
  Receipt Date: 20240507
  Transmission Date: 20240715
  Serious: No
  Sender: FDA-Public Use
  Company Number: US-Breckenridge Pharmaceutical, Inc.-2156648

PATIENT
  Age: 62 Year
  Sex: Female
  Weight: 72.727 kg

DRUGS (4)
  1. DULOXETINE HYDROCHLORIDE [Suspect]
     Active Substance: DULOXETINE HYDROCHLORIDE
     Indication: Depression
     Route: 048
  2. OMEGA 3 HEAT THERAPY [Concomitant]
     Active Substance: CAPSAICIN
  3. BUSPAR [Concomitant]
     Active Substance: BUSPIRONE HYDROCHLORIDE
  4. VITAMIN D [Concomitant]
     Active Substance: VITAMIN D NOS

REACTIONS (6)
  - Irritability [Recovered/Resolved]
  - Urine odour abnormal [Unknown]
  - Diarrhoea [Unknown]
  - Drug ineffective [Unknown]
  - Thirst [Unknown]
  - Apathy [Recovered/Resolved]
